FAERS Safety Report 6170857-5 (Version None)
Quarter: 2009Q2

REPORT INFORMATION
  Report Type: 
  Country: None (occurrence: None)
  Receive Date: 20090427
  Receipt Date: 20090421
  Transmission Date: 20091009
  Serious: Yes (Other)
  Sender: FDA-Public Use
  Company Number: 2009SP008577

PATIENT
  Sex: Female

DRUGS (2)
  1. PEG-INTRON [Suspect]
     Indication: HEPATITIS C
     Dates: start: 19990101
  2. RIBAVIRIN [Suspect]
     Indication: HEPATITIS C
     Dosage: ; PO
     Route: 048
     Dates: start: 19990101

REACTIONS (2)
  - RENAL TRANSPLANT [None]
  - THYROID DISORDER [None]
